FAERS Safety Report 5347470-2 (Version None)
Quarter: 2007Q2

REPORT INFORMATION
  Report Type: 
  Country: None (occurrence: None)
  Receive Date: 20070604
  Receipt Date: 20070604
  Transmission Date: 20071010
  Serious: Yes (Hospitalization)
  Sender: FDA-Public Use
  Company Number: None

PATIENT
  Sex: Female
  Weight: 55.3388 kg

DRUGS (2)
  1. IRINOTECAN HCL [Suspect]
     Indication: SMALL CELL LUNG CANCER STAGE UNSPECIFIED
     Dosage: 150MG/M2 D 1 Q21 IV
     Route: 042
     Dates: start: 20070524
  2. CARBOPLATIN [Suspect]
     Indication: SMALL CELL LUNG CANCER STAGE UNSPECIFIED
     Dosage: AUC 5MG D 1 Q21 IV
     Route: 042
     Dates: start: 20070524

REACTIONS (3)
  - CHEST PAIN [None]
  - DIARRHOEA [None]
  - VOMITING [None]
